FAERS Safety Report 7151842-3 (Version None)
Quarter: 2010Q4

REPORT INFORMATION
  Report Type: 
  Country: None (occurrence: None)
  Receive Date: 20101210
  Receipt Date: 20101208
  Transmission Date: 20110411
  Serious: Yes (Hospitalization)
  Sender: FDA-Public Use
  Company Number: US-B.I. PHARMACEUTICALS,INC./RIDGEFIELD-2010-BP-13963BP

PATIENT
  Age: 65 Year
  Sex: Male

DRUGS (1)
  1. PRADAXA [Suspect]
     Dates: start: 20101101

REACTIONS (4)
  - BLOOD CREATININE INCREASED [None]
  - CARDIAC TAMPONADE [None]
  - CREATININE RENAL CLEARANCE DECREASED [None]
  - PERICARDIAL HAEMORRHAGE [None]
